FAERS Safety Report 14557503 (Version 1)
Quarter: 2018Q1

REPORT INFORMATION
  Report Type: Spontaneous
  Country: NL (occurrence: NL)
  Receive Date: 20180221
  Receipt Date: 20180221
  Transmission Date: 20180509
  Serious: Yes (Death, Hospitalization)
  Sender: FDA-Public Use
  Company Number: NL-CONCORDIA PHARMACEUTICALS INC.-E2B_00009978

PATIENT
  Age: 68 Year
  Sex: Male

DRUGS (5)
  1. INFLIXIMAB HOSPIRA [Suspect]
     Active Substance: INFLIXIMAB
     Indication: AUTOIMMUNE COLITIS
  2. INFLIXIMAB HOSPIRA [Suspect]
     Active Substance: INFLIXIMAB
     Indication: LYMPHOCYTIC HYPOPHYSITIS
     Dosage: UNK
     Dates: start: 201412
  3. PREDNISOLONE. [Suspect]
     Active Substance: PREDNISOLONE
     Indication: AUTOIMMUNE COLITIS
     Dosage: UNK
     Dates: start: 201412
  4. PREDNISOLONE. [Suspect]
     Active Substance: PREDNISOLONE
     Indication: LYMPHOCYTIC HYPOPHYSITIS
  5. IPILIMUMAB [Suspect]
     Active Substance: IPILIMUMAB
     Indication: METASTATIC NEOPLASM
     Dosage: 3 MG/KG, UNK
     Dates: start: 2014

REACTIONS (2)
  - Disease recurrence [Fatal]
  - Herpes simplex encephalitis [Fatal]

NARRATIVE: CASE EVENT DATE: 2014
